FAERS Safety Report 13573070 (Version 2)
Quarter: 2018Q1

REPORT INFORMATION
  Report Type: Spontaneous
  Country: US (occurrence: US)
  Receive Date: 20170523
  Receipt Date: 20180326
  Transmission Date: 20180508
  Serious: Yes (Life-Threatening, Other)
  Sender: FDA-Public Use
  Company Number: US-WEST-WARD PHARMACEUTICALS CORP.-US-H14001-17-01518

PATIENT
  Age: 52 Year
  Sex: Male

DRUGS (2)
  1. SOTALOL. [Suspect]
     Active Substance: SOTALOL
     Indication: CARDIOMYOPATHY
     Route: 065
     Dates: start: 2015
  2. FLECAINIDE [Suspect]
     Active Substance: FLECAINIDE
     Indication: CARDIOMYOPATHY
     Route: 065
     Dates: start: 2015

REACTIONS (3)
  - Fatigue [Unknown]
  - Treatment failure [Unknown]
  - Dysgeusia [Unknown]
